FAERS Safety Report 4892266-9 (Version None)
Quarter: 2006Q1

REPORT INFORMATION
  Report Type: 
  Country: None (occurrence: None)
  Receive Date: 20060124
  Receipt Date: 20060111
  Transmission Date: 20060701
  Serious: Yes (Hospitalization)
  Sender: FDA-Public Use
  Company Number: TNZFR200500114

PATIENT
  Age: 57 Year
  Sex: Female

DRUGS (4)
  1. INNOHEP [Suspect]
     Dosage: 4500 IU (4500 IU), SUBCUTANEOUS
     Route: 058
     Dates: start: 20051021, end: 20051024
  2. DI-ANTALVIC (APOREX) [Suspect]
     Dosage: ORAL
     Route: 048
     Dates: start: 20051021, end: 20051024
  3. KETOPROFEN [Suspect]
     Dosage: ORAL
     Route: 048
     Dates: start: 20051021, end: 20051024
  4. FOSAMAX [Concomitant]

REACTIONS (5)
  - DUODENAL ULCER [None]
  - GASTRIC ULCER [None]
  - HAEMOGLOBIN DECREASED [None]
  - MELAENA [None]
  - STRESS [None]
